FAERS Safety Report 14329980 (Version 1)
Quarter: 2017Q4

REPORT INFORMATION
  Report Type: Spontaneous
  Country: US (occurrence: US)
  Receive Date: 20171227
  Receipt Date: 20171227
  Transmission Date: 20180321
  Serious: No
  Sender: FDA-Public Use
  Company Number: US-009507513-1711USA012073

PATIENT
  Age: 30 Year
  Sex: Female
  Weight: 230 kg

DRUGS (1)
  1. NEXPLANON [Suspect]
     Active Substance: ETONOGESTREL
     Dosage: 1 DF, UNK
     Route: 059
     Dates: start: 20170317

REACTIONS (9)
  - Headache [Unknown]
  - Implant site discharge [Unknown]
  - Chills [Unknown]
  - Product quality issue [Unknown]
  - Implant site bruising [Unknown]
  - Implant site infection [Unknown]
  - Acne [Unknown]
  - Abdominal pain [Unknown]
  - Device breakage [Not Recovered/Not Resolved]

NARRATIVE: CASE EVENT DATE: 201709
